FAERS Safety Report 10366861 (Version 5)
Quarter: 2014Q4

REPORT INFORMATION
  Report Type: Spontaneous
  Country: DE (occurrence: DE)
  Receive Date: 20140807
  Receipt Date: 20141212
  Transmission Date: 20150528
  Serious: Yes (Hospitalization)
  Sender: FDA-Public Use
  Company Number: DE-AMGEN-DEUSP2014059263

PATIENT
  Sex: Male

DRUGS (12)
  1. NEULASTA [Suspect]
     Active Substance: PEGFILGRASTIM
     Indication: B-CELL LYMPHOMA
     Dosage: 6 MG, (1 IN 14 D)
     Route: 058
     Dates: start: 20140621
  2. SULFAMETHOXAZOLE AND TRIMETHOPRIM [Concomitant]
     Active Substance: SULFAMETHOXAZOLE\TRIMETHOPRIM
     Dosage: 960 MG, 2 IN 1 D
     Route: 048
     Dates: start: 20140618
  3. CYCLOPHOSPHAMIDE. [Concomitant]
     Active Substance: CYCLOPHOSPHAMIDE
     Indication: B-CELL LYMPHOMA
     Dosage: 1250 MG, (1 IN 14 D)
     Route: 042
     Dates: start: 20140618
  4. DOXORUBICINE                       /00330901/ [Concomitant]
     Active Substance: DOXORUBICIN
     Indication: B-CELL LYMPHOMA
     Dosage: 85 MG, (1 IN 14 D)
     Route: 042
     Dates: start: 20140618
  5. VINCRISTINE [Concomitant]
     Active Substance: VINCRISTINE
     Indication: B-CELL LYMPHOMA
     Dosage: 2 MG, (1 IN 14 D)
     Route: 042
     Dates: start: 20140618
  6. VITAMIN B12 [Concomitant]
     Active Substance: CYANOCOBALAMIN
     Indication: HYPOVITAMINOSIS
     Dosage: 1000 MCG, 1 IN 1 D
     Route: 058
     Dates: start: 20140720
  7. PANTOPRAZOLE SODIUM [Concomitant]
     Active Substance: PANTOPRAZOLE SODIUM
     Dosage: 40 MG, 1 IN 1 D
     Route: 048
     Dates: start: 20140618, end: 20140702
  8. ACICLOVIR [Concomitant]
     Active Substance: ACYCLOVIR
     Dosage: 400 MG, 4 IN 1 D
     Route: 048
     Dates: start: 20140618
  9. SODIUM PICOSULFATE [Concomitant]
     Active Substance: SODIUM PICOSULFATE
     Indication: CONSTIPATION
     Dosage: 10 DROPS IN MORNING
     Route: 048
     Dates: start: 20140618
  10. RITUXIMAB [Concomitant]
     Active Substance: RITUXIMAB
     Indication: B-CELL LYMPHOMA
     Dosage: UNK, (1 IN 14 D)
     Route: 042
     Dates: start: 20140612
  11. ARGININE [Concomitant]
     Active Substance: ARGININE
     Dosage: 1500 ML, 1 IN 1 D
     Dates: start: 20140702
  12. PREDNISONE. [Concomitant]
     Active Substance: PREDNISONE
     Indication: B-CELL LYMPHOMA
     Dosage: 100 MG, 1 IN 1 D
     Route: 048
     Dates: start: 20140618

REACTIONS (3)
  - Pyrexia [Recovered/Resolved]
  - Leukocytosis [Recovered/Resolved]
  - Febrile neutropenia [Recovered/Resolved]

NARRATIVE: CASE EVENT DATE: 20140710
